FAERS Safety Report 6153308-6 (Version None)
Quarter: 2009Q2

REPORT INFORMATION
  Report Type: 
  Country: None (occurrence: None)
  Receive Date: 20090413
  Receipt Date: 20090408
  Transmission Date: 20091009
  Serious: No
  Sender: FDA-Public Use
  Company Number: US-B.I. PHARMACEUTICALS,INC./RIDGEFIELD-2009-BP-04451BP

PATIENT
  Age: 53 Year
  Sex: Male

DRUGS (2)
  1. FLOMAX [Suspect]
     Dosage: .4MG
     Dates: start: 20090405
  2. WARFARIN SODIUM [Concomitant]
     Indication: EMBOLISM

REACTIONS (5)
  - CHILLS [None]
  - FATIGUE [None]
  - MUSCULAR WEAKNESS [None]
  - PAIN [None]
  - PYREXIA [None]
